FAERS Safety Report 6176834-2 (Version None)
Quarter: 2009Q2

REPORT INFORMATION
  Report Type: 
  Country: None (occurrence: None)
  Receive Date: 20090501
  Receipt Date: 20090424
  Transmission Date: 20091009
  Serious: Yes (Other)
  Sender: FDA-Public Use
  Company Number: PHHY2009GB16216

PATIENT

DRUGS (1)
  1. EXJADE [Suspect]

REACTIONS (1)
  - HAEMATURIA [None]
